FAERS Safety Report 22645308 (Version 1)
Quarter: 2023Q2

REPORT INFORMATION
  Report Type: Spontaneous
  Country: CA (occurrence: CA)
  Receive Date: 20230627
  Receipt Date: 20230627
  Transmission Date: 20230722
  Serious: Yes (Disabling)
  Sender: FDA-Public Use
  Company Number: CA-MYLANLABS-2023M1067854

PATIENT
  Age: 49 Year
  Sex: Male

DRUGS (2)
  1. CLARITHROMYCIN [Suspect]
     Active Substance: CLARITHROMYCIN
     Indication: Pneumonia
     Dosage: 500 MILLIGRAM, BID (1 EVERY 12 HOURS)
     Route: 048
  2. VITAMIN C [Concomitant]
     Active Substance: ASCORBIC ACID
     Dosage: UNK
     Route: 065

REACTIONS (4)
  - Agitation [Recovered/Resolved]
  - Paranoia [Recovered/Resolved]
  - Confusional state [Recovered/Resolved]
  - Insomnia [Recovered/Resolved]
